FAERS Safety Report 14433969 (Version 3)
Quarter: 2018Q2

REPORT INFORMATION
  Report Type: Report from Study
  Country: CO (occurrence: CO)
  Receive Date: 20180124
  Receipt Date: 20180606
  Transmission Date: 20180711
  Serious: Yes (Hospitalization, Other)
  Sender: FDA-Public Use
  Company Number: PHHY2018CO006011

PATIENT
  Age: 79 Year
  Sex: Female

DRUGS (3)
  1. CONCOR [Concomitant]
     Active Substance: BISOPROLOL FUMARATE
     Indication: PRODUCT USED FOR UNKNOWN INDICATION
     Route: 065
  2. ACETYLSALICYLIC ACID [Concomitant]
     Active Substance: ASPIRIN
     Indication: PRODUCT USED FOR UNKNOWN INDICATION
     Route: 065
  3. ENTRESTO [Suspect]
     Active Substance: SACUBITRIL\VALSARTAN
     Indication: CARDIAC FAILURE
     Dosage: 50 MG, Q12H
     Route: 048
     Dates: start: 20171023

REACTIONS (7)
  - Fall [Unknown]
  - Osteoarthritis [Not Recovered/Not Resolved]
  - Hip fracture [Unknown]
  - Venous thrombosis [Unknown]
  - Cardiac discomfort [Unknown]
  - Lower limb fracture [Unknown]
  - Joint swelling [Unknown]

NARRATIVE: CASE EVENT DATE: 201712
